FAERS Safety Report 21239806 (Version 7)
Quarter: 2023Q1

REPORT INFORMATION
  Report Type: Report from Study
  Country: US (occurrence: US)
  Receive Date: 20220822
  Receipt Date: 20230317
  Transmission Date: 20230417
  Serious: Yes (Other)
  Sender: FDA-Public Use
  Company Number: US-ABBVIE-22K-163-4459960-00

PATIENT
  Age: 66 Year
  Sex: Male

DRUGS (2)
  1. HUMIRA [Suspect]
     Active Substance: ADALIMUMAB
     Indication: Psoriasis
     Dosage: CITRATE FREE?FORM STRENGTH: 40 MG
     Route: 058
     Dates: start: 20210510, end: 2022
  2. HUMIRA [Suspect]
     Active Substance: ADALIMUMAB
     Dosage: CITRATE FREE?FORM STRENGTH: 40 MG
     Route: 058
     Dates: start: 2022, end: 2022

REACTIONS (11)
  - Suicidal ideation [Recovered/Resolved]
  - White blood cell count abnormal [Recovering/Resolving]
  - Skin plaque [Recovering/Resolving]
  - Psoriasis [Recovering/Resolving]
  - Scab [Recovering/Resolving]
  - Underweight [Recovering/Resolving]
  - Mycobacterium tuberculosis complex test positive [Recovering/Resolving]
  - Wound [Recovering/Resolving]
  - Laboratory test abnormal [Recovering/Resolving]
  - Mycobacterium tuberculosis complex test positive [Recovering/Resolving]
  - Pain in extremity [Recovering/Resolving]

NARRATIVE: CASE EVENT DATE: 20220501
